FAERS Safety Report 9928709 (Version 2)
Quarter: 2014Q1

REPORT INFORMATION
  Report Type: Report from Study
  Country: DE (occurrence: DE)
  Receive Date: 20140227
  Receipt Date: 20140227
  Transmission Date: 20141002
  Serious: Yes (Death, Hospitalization)
  Sender: FDA-Public Use
  Company Number: PHHO2014DE002048

PATIENT
  Sex: 0

DRUGS (12)
  1. BLINDED ACZ885 [Suspect]
     Indication: CARDIOVASCULAR EVENT PROPHYLAXIS
     Dosage: CODE NOT BROKEN
     Route: 058
  2. BLINDED NO TREATMENT RECEIVED [Suspect]
     Indication: CARDIOVASCULAR EVENT PROPHYLAXIS
     Dosage: CODE NOT BROKEN
     Route: 058
  3. BLINDED PLACEBO [Suspect]
     Indication: CARDIOVASCULAR EVENT PROPHYLAXIS
     Dosage: CODE NOT BROKEN
     Route: 058
  4. FALITHROM [Suspect]
     Indication: ATRIAL FIBRILLATION
     Dosage: ACCORDING TO INR
     Route: 048
     Dates: start: 20130515, end: 20140105
  5. NOVORAPID [Suspect]
     Indication: DIABETES MELLITUS
     Dosage: 8 IUIN THE MORNING, 4 IU NOON, 8 IU IN THE EVENING
  6. LANTUS [Suspect]
     Indication: DIABETES MELLITUS
     Dosage: 12 IU, QD ( AT NIGHT)
  7. PANTOPRAZOLE [Concomitant]
     Dosage: 40 MG, QD
  8. RAMIPRIL [Concomitant]
     Indication: HYPERTENSION
     Dosage: 5 MG, QD
  9. TORSEMIDE [Concomitant]
     Indication: HYPERTENSION
     Dosage: 10 MG, QD
  10. FLUVASTATIN [Concomitant]
     Indication: HYPERCHOLESTEROLAEMIA
     Dosage: 20 MG, QD
  11. DIGITOXIN [Concomitant]
     Dosage: 0.07 MG, QD
  12. METOPROLOL [Concomitant]
     Dosage: 71.25 MG,( 47.5 MG IN THE MORNING AND 23.75 MG IN THE EVENING)

REACTIONS (2)
  - Subdural haematoma [Recovered/Resolved]
  - Death [Fatal]
